FAERS Safety Report 20802302 (Version 2)
Quarter: 2022Q3

REPORT INFORMATION
  Report Type: Spontaneous
  Country: DE (occurrence: DE)
  Receive Date: 20220509
  Receipt Date: 20220928
  Transmission Date: 20221026
  Serious: Yes (Other)
  Sender: FDA-Public Use
  Company Number: DE-VELOXIS PHARMACEUTICALS-2022VELDE-000299

PATIENT
  Age: 10 Year
  Sex: Female

DRUGS (1)
  1. TACROLIMUS [Suspect]
     Active Substance: TACROLIMUS
     Indication: Seizure
     Dosage: 0.1 MILLIGRAM/KILOGRAM, QD

REACTIONS (7)
  - Suicidal ideation [Unknown]
  - Status epilepticus [Unknown]
  - Seizure [Recovering/Resolving]
  - Multiple-drug resistance [Unknown]
  - Off label use [Unknown]
  - Off label use [Unknown]
  - Product use issue [Unknown]
